FAERS Safety Report 18599140 (Version 4)
Quarter: 2021Q1

REPORT INFORMATION
  Report Type: Report from Study
  Country: GT (occurrence: GT)
  Receive Date: 20201210
  Receipt Date: 20210227
  Transmission Date: 20210419
  Serious: Yes (Other)
  Sender: FDA-Public Use
  Company Number: NVSC2020GT323619

PATIENT
  Sex: Female
  Weight: 61.22 kg

DRUGS (4)
  1. SOTALOL. [Concomitant]
     Active Substance: SOTALOL
     Dosage: 160 MG, QD (HALF TABLET AFTER BREAKFAST AND HALF TABLET AFTER DINNER)
     Route: 048
  2. SOTALOL. [Concomitant]
     Active Substance: SOTALOL
     Indication: ARRHYTHMIA
     Dosage: SINCE 3 YEARS AGO
     Route: 048
  3. DIOVAN [Suspect]
     Active Substance: VALSARTAN
     Indication: HYPERTENSION
     Dosage: 320 MG,SINCE ALMOST 2 YEARS AGO
     Route: 048
  4. RIVOTRIL [Concomitant]
     Active Substance: CLONAZEPAM
     Indication: TENSION
     Dosage: 2 MG, A QUARTER OF TABLET, WHEN FEELS VERY TENS (START TREATMENT DATE: 3 YEARS AGO)
     Route: 048

REACTIONS (11)
  - Hypothyroidism [Unknown]
  - Phobia [Unknown]
  - Weight increased [Unknown]
  - Inappropriate schedule of product administration [Unknown]
  - Wrong technique in product usage process [Unknown]
  - Gastrooesophageal reflux disease [Unknown]
  - Gastritis [Unknown]
  - Confusional state [Unknown]
  - Blood pressure inadequately controlled [Unknown]
  - Stress [Not Recovered/Not Resolved]
  - Malaise [Unknown]
